FAERS Safety Report 11402450 (Version 1)
Quarter: 2015Q3

REPORT INFORMATION
  Report Type: Spontaneous
  Country: US (occurrence: US)
  Receive Date: 20150821
  Receipt Date: 20150821
  Transmission Date: 20151125
  Serious: No
  Sender: FDA-Public Use
  Company Number: US-ROCHE-1313642

PATIENT
  Sex: Male
  Weight: 81.72 kg

DRUGS (4)
  1. PEGASYS [Suspect]
     Active Substance: PEGINTERFERON ALFA-2A
     Indication: CHRONIC HEPATITIS C
     Route: 058
     Dates: start: 20131006
  2. HYDROCORTISONE CREAM [Concomitant]
     Active Substance: HYDROCORTISONE
  3. RIBAVIRIN. [Suspect]
     Active Substance: RIBAVIRIN
     Indication: CHRONIC HEPATITIS C
     Dosage: DIVIDED DOSES 600/600
     Route: 048
     Dates: start: 20131006
  4. INCIVEK [Suspect]
     Active Substance: TELAPREVIR
     Indication: CHRONIC HEPATITIS C
     Route: 058
     Dates: start: 20131006, end: 20131129

REACTIONS (10)
  - Muscle twitching [Unknown]
  - Pruritus generalised [Unknown]
  - Dry skin [Unknown]
  - Pruritus [Unknown]
  - Sensory disturbance [Unknown]
  - Dermal cyst [Unknown]
  - Paraesthesia [Unknown]
  - Scab [Unknown]
  - Weight increased [Unknown]
  - Burning sensation [Unknown]
